FAERS Safety Report 6822834-6 (Version None)
Quarter: 2010Q3

REPORT INFORMATION
  Report Type: 
  Country: None (occurrence: None)
  Receive Date: 20100707
  Receipt Date: 20100707
  Transmission Date: 20110219
  Serious: Yes (Life-Threatening)
  Sender: FDA-Public Use
  Company Number: None

PATIENT
  Sex: Male
  Weight: 105.9 kg

DRUGS (1)
  1. ANCEF [Suspect]
     Indication: CELLULITIS
     Dates: start: 20100701, end: 20100701

REACTIONS (1)
  - RESPIRATORY FAILURE [None]
